FAERS Safety Report 4935085-7 (Version None)
Quarter: 2006Q1

REPORT INFORMATION
  Report Type: 
  Country: None (occurrence: None)
  Receive Date: 20060303
  Receipt Date: 20060303
  Transmission Date: 20060701
  Serious: No
  Sender: FDA-Public Use
  Company Number: None

PATIENT
  Age: 31 Year
  Sex: Female
  Weight: 87.9978 kg

DRUGS (2)
  1. PAROXETINE HCL [Suspect]
     Indication: ANXIETY
     Dosage: 20MG, DAILY, PO
     Route: 048
  2. PAROXETINE HCL [Suspect]
     Indication: DEPRESSION
     Dosage: 20MG, DAILY, PO
     Route: 048

REACTIONS (4)
  - DRUG INEFFECTIVE [None]
  - DYSPEPSIA [None]
  - NAUSEA [None]
  - PHARMACEUTICAL PRODUCT COMPLAINT [None]
